FAERS Safety Report 23514078 (Version 1)
Quarter: 2024Q1

REPORT INFORMATION
  Report Type: Spontaneous
  Country: US (occurrence: None)
  Receive Date: 20240211
  Receipt Date: 20240211
  Transmission Date: 20240409
  Serious: Yes (Life-Threatening, Hospitalization, Other)
  Sender: FDA-Public Use
  Company Number: None

PATIENT
  Age: 67 Year
  Sex: Female
  Weight: 49.95 kg

DRUGS (6)
  1. EYLEA [Suspect]
     Active Substance: AFLIBERCEPT
     Indication: Macular oedema
     Dosage: 40 INJECTIONS MONTHLY OPHTHALMIC ?
     Route: 047
     Dates: start: 20240201
  2. EYLEA [Suspect]
     Active Substance: AFLIBERCEPT
     Indication: Diabetic retinopathy
  3. INSULIN NOS [Concomitant]
     Active Substance: INSULIN NOS
  4. LOSARTAN [Concomitant]
     Active Substance: LOSARTAN
  5. METOPROLOL SUCCINATE [Concomitant]
     Active Substance: METOPROLOL SUCCINATE
  6. PRAVASTATIN [Concomitant]
     Active Substance: PRAVASTATIN

REACTIONS (2)
  - Coronary artery stenosis [None]
  - Acute myocardial infarction [None]

NARRATIVE: CASE EVENT DATE: 20231231
